FAERS Safety Report 17128872 (Version 1)
Quarter: 2019Q4

REPORT INFORMATION
  Report Type: Spontaneous
  Country: US (occurrence: US)
  Receive Date: 20191207
  Receipt Date: 20191207
  Transmission Date: 20200122
  Serious: No
  Sender: FDA-Public Use
  Company Number: None

PATIENT
  Age: 34 Year
  Sex: Female
  Weight: 63 kg

DRUGS (1)
  1. JEUVEAU [Suspect]
     Active Substance: PRABOTULINUMTOXINA-XVFS
     Dosage: ?          OTHER FREQUENCY:ONCE;?
     Route: 030

REACTIONS (3)
  - Oropharyngeal pain [None]
  - Dyspnoea [None]
  - Sinusitis [None]

NARRATIVE: CASE EVENT DATE: 20191206
